FAERS Safety Report 6892130-X (Version None)
Quarter: 2010Q3

REPORT INFORMATION
  Report Type: 
  Country: None (occurrence: None)
  Receive Date: 20100731
  Receipt Date: 20080118
  Transmission Date: 20110219
  Serious: No
  Sender: FDA-Public Use
  Company Number: US-PFIZER INC-2008006401

PATIENT
  Sex: Female
  Weight: 100 kg

DRUGS (10)
  1. NEURONTIN [Suspect]
     Indication: NEUROPATHY PERIPHERAL
     Route: 048
     Dates: end: 20080117
  2. CYMBALTA [Concomitant]
     Indication: DEPRESSION
  3. HYZAAR [Concomitant]
     Indication: HYPERTENSION
  4. ATENOLOL [Concomitant]
     Indication: HYPERTENSION
  5. DARVOCET [Concomitant]
     Indication: ARTHRITIS
  6. MOBIC [Concomitant]
     Indication: ARTHRITIS
  7. ACETYLSALICYLIC ACID SRT [Concomitant]
  8. PREMARIN [Concomitant]
  9. AMBIEN [Concomitant]
  10. XANAX [Concomitant]
     Indication: ANXIETY

REACTIONS (1)
  - PAIN [None]
